FAERS Safety Report 17088557 (Version 6)
Quarter: 2021Q1

REPORT INFORMATION
  Report Type: Report from Study
  Country: US (occurrence: US)
  Receive Date: 20191128
  Receipt Date: 20210319
  Transmission Date: 20210419
  Serious: Yes (Hospitalization, Other)
  Sender: FDA-Public Use
  Company Number: NVSC2019US051036

PATIENT
  Age: 66 Year
  Sex: Female

DRUGS (3)
  1. ENTRESTO [Suspect]
     Active Substance: SACUBITRIL\VALSARTAN
     Dosage: 1 DF (24MG SACUBITRIL/ 26MG VALSARTAN), BID
     Route: 048
     Dates: start: 201909
  2. ENTRESTO [Suspect]
     Active Substance: SACUBITRIL\VALSARTAN
     Indication: CARDIAC FAILURE
     Dosage: 1 DF (24/26 MG), BID
     Route: 048
     Dates: start: 20190827
  3. ENTRESTO [Suspect]
     Active Substance: SACUBITRIL\VALSARTAN
     Dosage: UNK UNK, BID
     Route: 048

REACTIONS (7)
  - Dyspnoea [Not Recovered/Not Resolved]
  - Sepsis [Recovering/Resolving]
  - Kidney infection [Recovering/Resolving]
  - Nephrolithiasis [Recovering/Resolving]
  - Hypertension [Recovered/Resolved]
  - Cough [Unknown]
  - Muscular weakness [Unknown]

NARRATIVE: CASE EVENT DATE: 201909
